FAERS Safety Report 16834779 (Version 1)
Quarter: 2019Q3

REPORT INFORMATION
  Report Type: Spontaneous
  Country: CN (occurrence: CN)
  Receive Date: 20190920
  Receipt Date: 20190920
  Transmission Date: 20191005
  Serious: Yes (Other)
  Sender: FDA-Public Use
  Company Number: CN-JNJFOC-20190924586

PATIENT
  Age: 69 Year
  Sex: Male
  Weight: 71 kg

DRUGS (2)
  1. RIVAROXABAN [Suspect]
     Active Substance: RIVAROXABAN
     Indication: THROMBOSIS PROPHYLAXIS
     Dosage: 10 MG, QD
     Route: 048
     Dates: start: 20190417, end: 20190711
  2. KE DA LONG [Concomitant]
     Indication: ATRIAL FIBRILLATION
     Dosage: 200 MG, QD
     Route: 048
     Dates: start: 20190417, end: 20190711

REACTIONS (3)
  - Anaemia [Unknown]
  - Off label use [Unknown]
  - Respiratory tract infection [Unknown]

NARRATIVE: CASE EVENT DATE: 2019
